FAERS Safety Report 21302667 (Version 1)
Quarter: 2022Q3

REPORT INFORMATION
  Report Type: Spontaneous
  Country: AE (occurrence: AE)
  Receive Date: 20220907
  Receipt Date: 20220907
  Transmission Date: 20221026
  Serious: Yes (Other)
  Sender: FDA-Public Use
  Company Number: AE-009507513-1907ARE004338

PATIENT
  Age: 30 Year
  Sex: Male

DRUGS (2)
  1. MOMETASONE FUROATE [Suspect]
     Active Substance: MOMETASONE FUROATE
     Indication: Seborrhoeic dermatitis
     Dosage: FOR 5 DAYS 10 MONTHS AGO
  2. SEROQUEL [Suspect]
     Active Substance: QUETIAPINE FUMARATE
     Indication: Insomnia
     Dosage: 200 MILLIGRAM

REACTIONS (1)
  - Central serous chorioretinopathy [Not Recovered/Not Resolved]
